FAERS Safety Report 4302585-2 (Version None)
Quarter: 2004Q1

REPORT INFORMATION
  Report Type: 
  Country: None (occurrence: None)
  Receive Date: 20040220
  Receipt Date: 20040212
  Transmission Date: 20041129
  Serious: Yes (Other)
  Sender: FDA-Public Use
  Company Number: HQWYE357502DEC03

PATIENT
  Sex: Female

DRUGS (3)
  1. EFFEXOR XR [Suspect]
     Indication: DEPRESSION
     Dosage: 75 MG 1X PER 1 DAY, ORAL
     Route: 048
     Dates: start: 20030416
  2. EFFEXOR XR [Suspect]
     Dosage: 75 MG 1X PER 2 DAY, ORAL
     Route: 048
  3. EFFEXOR XR [Suspect]
     Dosage: ^FEW GRANULES FROM A 75 MG CAPSULE EACH DAY^, ORAL
     Route: 048

REACTIONS (12)
  - BALANCE DISORDER [None]
  - DRUG WITHDRAWAL SYNDROME [None]
  - DRY MOUTH [None]
  - DYSGEUSIA [None]
  - GLOSSODYNIA [None]
  - MEDICATION ERROR [None]
  - OTITIS MEDIA [None]
  - PHOTOPHOBIA [None]
  - PRURITUS [None]
  - SUICIDAL IDEATION [None]
  - SWOLLEN TONGUE [None]
  - VIRAL INFECTION [None]
